FAERS Safety Report 7292795-7 (Version None)
Quarter: 2011Q1

REPORT INFORMATION
  Report Type: 
  Country: None (occurrence: None)
  Receive Date: 20110215
  Receipt Date: 20110208
  Transmission Date: 20110831
  Serious: Yes (Hospitalization)
  Sender: FDA-Public Use
  Company Number: AT-SANOFI-AVENTIS-2010SA071292

PATIENT
  Age: 72 Year
  Sex: Male

DRUGS (24)
  1. IRINOTECAN [Suspect]
     Route: 041
     Dates: start: 20101130, end: 20101130
  2. NOVOMIX [Concomitant]
  3. MOTILIUM [Concomitant]
     Dates: start: 20101118
  4. FORTECORTIN [Concomitant]
     Dates: start: 20101117
  5. ISOSORBIDE MONONITRATE [Concomitant]
     Route: 048
     Dates: start: 20101122
  6. NOVOMIX [Concomitant]
  7. ELOXATIN [Suspect]
     Indication: GASTRIC CANCER
     Route: 041
     Dates: start: 20101118, end: 20101118
  8. IRINOTECAN [Suspect]
     Indication: GASTRIC CANCER
     Route: 041
     Dates: start: 20101118, end: 20101118
  9. LISINOPRIL [Concomitant]
     Route: 048
  10. NITROLINGUAL [Concomitant]
     Dosage: 1-3 BOOSTS
     Route: 048
  11. BUSCOPAN [Concomitant]
     Dates: start: 20101118
  12. BUSCOPAN [Concomitant]
     Dates: start: 20101119
  13. NOVOMIX [Concomitant]
     Dates: start: 20101122
  14. NOVOMIX [Concomitant]
     Dates: start: 20101122
  15. DALTEPARIN SODIUM [Concomitant]
     Dates: start: 20101117
  16. BEVACIZUMAB [Suspect]
     Route: 041
     Dates: start: 20101130, end: 20101130
  17. SELOKEN [Concomitant]
     Route: 048
  18. SIMVASTATIN [Concomitant]
     Route: 048
  19. NAVOBAN [Concomitant]
     Dates: start: 20101119
  20. ELOXATIN [Suspect]
     Route: 041
     Dates: start: 20101130, end: 20101130
  21. BEVACIZUMAB [Suspect]
     Indication: GASTRIC CANCER
     Route: 041
     Dates: start: 20101118, end: 20101118
  22. ASPIRIN [Concomitant]
     Route: 048
  23. AMLODIPINE [Concomitant]
     Route: 048
  24. PANTOPRAZOLE [Concomitant]
     Dates: start: 20101118

REACTIONS (4)
  - PYREXIA [None]
  - HAEMATOCHEZIA [None]
  - ANGINA PECTORIS [None]
  - CHEST PAIN [None]
